FAERS Safety Report 10216228 (Version 1)
Quarter: 2014Q2

REPORT INFORMATION
  Report Type: Spontaneous
  Country: US (occurrence: None)
  Receive Date: 20140602
  Receipt Date: 20140602
  Transmission Date: 20141212
  Serious: Yes (Other)
  Sender: FDA-Public Use
  Company Number: 2014P1004488

PATIENT
  Sex: 0

DRUGS (4)
  1. GLYCOPYRROLATE INJECTION [Suspect]
     Indication: SURGERY
     Dates: start: 2014, end: 2014
  2. GLYCOPYRROLATE INJECTION [Suspect]
     Indication: SURGERY
     Dates: start: 2014, end: 2014
  3. ROBINUL [Suspect]
     Indication: SURGERY
     Dates: start: 2014, end: 2014
  4. NEOSTIGMINE [Suspect]
     Indication: SURGERY
     Dates: start: 2014, end: 2014

REACTIONS (2)
  - Cardiac disorder [None]
  - Disease complication [None]
